FAERS Safety Report 9271994 (Version 1)
Quarter: 2013Q2

REPORT INFORMATION
  Report Type: Spontaneous
  Country: GB (occurrence: GB)
  Receive Date: 20130506
  Receipt Date: 20130506
  Transmission Date: 20140414
  Serious: Yes (Life-Threatening, Hospitalization)
  Sender: FDA-Public Use
  Company Number: GB-TEVA-402142ISR

PATIENT
  Age: 79 Year
  Sex: Male
  Weight: 80 kg

DRUGS (6)
  1. WARFARIN [Suspect]
     Indication: ATRIAL FIBRILLATION
  2. ASPIRIN [Suspect]
     Dosage: 75 MILLIGRAM DAILY;
  3. FUROSEMIDE [Concomitant]
     Dosage: 120 MILLIGRAM DAILY; 80MG IN THE MORNING AND 40MG IN MID-DAY
  4. METOLAZONE [Concomitant]
  5. DIGOXIN [Concomitant]
     Dosage: 125 MICROGRAM DAILY;
  6. LISINOPRIL [Concomitant]
     Dosage: 10 MILLIGRAM DAILY;

REACTIONS (2)
  - Upper gastrointestinal haemorrhage [Recovering/Resolving]
  - Gastrointestinal ulcer [Recovering/Resolving]
